FAERS Safety Report 10619671 (Version 2)
Quarter: 2014Q4

REPORT INFORMATION
  Report Type: Report from Study
  Country: GB (occurrence: GB)
  Receive Date: 20141202
  Receipt Date: 20141202
  Transmission Date: 20150529
  Serious: Yes (Death, Hospitalization)
  Sender: FDA-Public Use
  Company Number: GB-BRISTOL-MYERS SQUIBB COMPANY-21027743

PATIENT
  Age: 45 Year
  Sex: Female
  Weight: 101 kg

DRUGS (3)
  1. IPILIMUMAB [Suspect]
     Active Substance: IPILIMUMAB
     Indication: SMALL CELL LUNG CANCER
     Dosage: 1DF=980 UNITS NOS?LAST DOSE ADMN:28/5/2014
     Dates: start: 20140312, end: 20140528
  2. CARBOPLATIN. [Suspect]
     Active Substance: CARBOPLATIN
     Indication: SMALL CELL LUNG CANCER
     Dosage: 1DF=870 UNITS NOS?LAST DOSE ADMN:28MAY14
     Dates: start: 20140124, end: 20140528
  3. ETOPOSIDE. [Suspect]
     Active Substance: ETOPOSIDE
     Indication: SMALL CELL LUNG CANCER
     Dosage: 1DF=240UNITS?LAST DOSE ADMINISTRATION 28MAY14
     Dates: start: 20140124, end: 20140528

REACTIONS (2)
  - Pancytopenia [Not Recovered/Not Resolved]
  - Neutropenic sepsis [Fatal]

NARRATIVE: CASE EVENT DATE: 20140609
